FAERS Safety Report 24122129 (Version 2)
Quarter: 2025Q4

REPORT INFORMATION
  Report Type: Report from Study
  Country: EU (occurrence: EU)
  Receive Date: 20240722
  Receipt Date: 20251112
  Transmission Date: 20260118
  Serious: Yes (Other)
  Sender: SANDOZ
  Company Number: EU-SANDOZ-SDZ2024DE059166

PATIENT
  Sex: Female
  Weight: 11.6 kg

DRUGS (3)
  1. SOMATROPIN [Suspect]
     Active Substance: SOMATROPIN
     Indication: Small for dates baby
     Dosage: 0.5 MG, QD
     Route: 058
     Dates: start: 20230630, end: 20240308
  2. SOMATROPIN [Suspect]
     Active Substance: SOMATROPIN
     Dosage: 0.6 MG, QD
     Route: 058
     Dates: start: 20240308, end: 20240715
  3. SOMATROPIN [Suspect]
     Active Substance: SOMATROPIN
     Dosage: 0.7 MG, QD
     Route: 058
     Dates: start: 20241213

REACTIONS (5)
  - Lipodystrophy acquired [Recovering/Resolving]
  - Lymphadenopathy [Not Recovered/Not Resolved]
  - Rhinorrhoea [Recovered/Resolved]
  - Otitis media [Recovered/Resolved]
  - Abdominal pain [Recovered/Resolved]

NARRATIVE: CASE EVENT DATE: 20240131
